FAERS Safety Report 7517562-8 (Version None)
Quarter: 2011Q2

REPORT INFORMATION
  Report Type: 
  Country: None (occurrence: None)
  Receive Date: 20110601
  Receipt Date: 20110519
  Transmission Date: 20111010
  Serious: Yes (Hospitalization, Other)
  Sender: FDA-Public Use
  Company Number: DE-ELI_LILLY_AND_COMPANY-DE201105005415

PATIENT
  Age: 80 Year
  Sex: Male

DRUGS (2)
  1. FORTEO [Suspect]
     Indication: OSTEOPOROSIS
     Dosage: UNK, QD
     Route: 058
     Dates: start: 20110209, end: 20110401
  2. CORTISONE ACETATE [Concomitant]
     Dosage: 5 MG, OTHER EVERY SECOND OR THIRD DAY

REACTIONS (6)
  - AORTIC VALVE INCOMPETENCE [None]
  - BONE PAIN [None]
  - PULMONARY OEDEMA [None]
  - CARDIAC FAILURE [None]
  - DYSPNOEA [None]
  - PYREXIA [None]
